FAERS Safety Report 4660952-1 (Version None)
Quarter: 2005Q2

REPORT INFORMATION
  Report Type: 
  Country: None (occurrence: None)
  Receive Date: 20050511
  Receipt Date: 20050428
  Transmission Date: 20051028
  Serious: Yes (Life-Threatening, Other)
  Sender: FDA-Public Use
  Company Number: 2005067506

PATIENT
  Sex: Male
  Weight: 58.0604 kg

DRUGS (2)
  1. SILDENAFIL CITRATE [Suspect]
     Indication: ERECTILE DYSFUNCTION
  2. OTHER ANTI-ASTHMATICS, INHALANTS [Concomitant]

REACTIONS (7)
  - DRUG INEFFECTIVE [None]
  - LYMPHOMA [None]
  - METASTASES TO BONE [None]
  - OESOPHAGEAL MASS [None]
  - PAIN [None]
  - SALIVARY GLAND CANCER [None]
  - WEIGHT DECREASED [None]
